FAERS Safety Report 6944841-5 (Version None)
Quarter: 2010Q3

REPORT INFORMATION
  Report Type: 
  Country: None (occurrence: None)
  Receive Date: 20100827
  Receipt Date: 20100819
  Transmission Date: 20110219
  Serious: Yes (Hospitalization, Other)
  Sender: FDA-Public Use
  Company Number: CA-JNJFOC-20090806039

PATIENT
  Sex: Female
  Weight: 98 kg

DRUGS (3)
  1. REMICADE [Suspect]
     Indication: CROHN'S DISEASE
     Dosage: TOTAL NUMBER OF DOSES=15
     Route: 042
  2. IMURAN [Concomitant]
     Indication: FISTULA
     Route: 048
  3. QUESTRAN [Concomitant]

REACTIONS (6)
  - ABDOMINAL PAIN [None]
  - BILE DUCT STONE [None]
  - CHOLECYSTITIS [None]
  - CHOLELITHIASIS [None]
  - NAUSEA [None]
  - VOMITING [None]
